FAERS Safety Report 7922851 (Version 3)
Quarter: 2013Q2

REPORT INFORMATION
  Report Type: Spontaneous
  Country: US (occurrence: US)
  Receive Date: 20110429
  Receipt Date: 20130430
  Transmission Date: 20140414
  Serious: No
  Sender: FDA-Public Use
  Company Number: US-ASTRAZENECA-2010SE10244

PATIENT
  Age: 83 Year
  Sex: Female

DRUGS (1)
  1. NEXIUM [Suspect]
     Indication: HIATUS HERNIA
     Route: 048

REACTIONS (11)
  - Oropharyngeal pain [Unknown]
  - Chest pain [Unknown]
  - Throat irritation [Unknown]
  - Thyroid disorder [Unknown]
  - Pain [Unknown]
  - Dyspepsia [Unknown]
  - Asthenia [Unknown]
  - Weight decreased [Unknown]
  - Insomnia [Unknown]
  - Diarrhoea [Unknown]
  - Intentional drug misuse [Unknown]
